FAERS Safety Report 8816089 (Version 1)
Quarter: 2012Q4

REPORT INFORMATION
  Report Type: 
  Country: US (occurrence: US)
  Receive Date: 20120928
  Receipt Date: 20120928
  Transmission Date: 20130627
  Serious: Yes (Other)
  Sender: FDA-Public Use
  Company Number: US-PFIZER INC-2012240464

PATIENT
  Age: 73 Year
  Sex: Female
  Weight: 136 kg

DRUGS (6)
  1. LYRICA [Suspect]
     Indication: HERPES ZOSTER
     Dosage: UNK
     Dates: start: 2012, end: 2012
  2. LYRICA [Suspect]
     Indication: NEUROPATHY PERIPHERAL
  3. MIRALAX [Concomitant]
     Indication: CONSTIPATION
     Dosage: UNK, as needed (one to two times a day)
  4. TAMOXIFEN [Concomitant]
     Indication: BREAST CANCER
     Dosage: UNK, 2x/day
  5. PROTONIX [Concomitant]
     Indication: GASTRIC ULCER
     Dosage: UNK, as needed (one to two times a day)
  6. EFFEXOR [Concomitant]
     Indication: DEPRESSION
     Dosage: UNK, daily

REACTIONS (3)
  - Weight increased [Unknown]
  - Swelling [Recovering/Resolving]
  - Cystitis [Unknown]
